FAERS Safety Report 7444264-9 (Version None)
Quarter: 2011Q2

REPORT INFORMATION
  Report Type: 
  Country: None (occurrence: None)
  Receive Date: 20110429
  Receipt Date: 20110415
  Transmission Date: 20111010
  Serious: Yes (Hospitalization, Other)
  Sender: FDA-Public Use
  Company Number: US-JNJFOC-20110407583

PATIENT
  Sex: Male
  Weight: 90.72 kg

DRUGS (18)
  1. FENTANYL-100 [Suspect]
     Indication: NEUROPATHY PERIPHERAL
     Route: 062
  2. COREG [Concomitant]
     Indication: CARDIAC DISORDER
     Route: 048
  3. FENTANYL-100 [Suspect]
     Route: 062
  4. FENTANYL-100 [Suspect]
     Route: 062
  5. PERCOCET [Suspect]
     Indication: HIP FRACTURE
     Route: 048
  6. LYRICA [Suspect]
     Route: 048
  7. NEXIUM [Concomitant]
     Indication: GASTRIC DISORDER
     Route: 048
  8. FENTANYL-100 [Suspect]
     Indication: NEUROPATHY PERIPHERAL
     Route: 062
  9. LOVENOX [Concomitant]
     Indication: ANTICOAGULANT THERAPY
     Dosage: AS NEEDED
     Route: 058
  10. LYRICA [Suspect]
     Route: 048
  11. UNKNOWN MEDICATION [Concomitant]
     Indication: PRODUCT USED FOR UNKNOWN INDICATION
     Route: 048
  12. XANAX [Concomitant]
     Indication: NERVOUSNESS
     Dosage: AS NEEDED
     Route: 048
  13. LYRICA [Suspect]
     Indication: NEUROPATHY PERIPHERAL
     Route: 048
  14. COUMADIN [Concomitant]
     Indication: ANTICOAGULANT THERAPY
     Route: 048
  15. SUCRALFATE [Concomitant]
     Indication: HIATUS HERNIA
     Route: 048
  16. CYMBALTA [Concomitant]
     Indication: SLEEP DISORDER THERAPY
     Route: 048
  17. POTASSIUM CHLORIDE [Concomitant]
     Indication: MINERAL SUPPLEMENTATION
     Route: 048
  18. EVOXAC [Concomitant]
     Indication: DRY MOUTH
     Dosage: AS NEEDED
     Route: 048

REACTIONS (10)
  - OSTEONECROSIS [None]
  - APPLICATION SITE VESICLES [None]
  - WRONG TECHNIQUE IN DRUG USAGE PROCESS [None]
  - WITHDRAWAL SYNDROME [None]
  - FALL [None]
  - HIP FRACTURE [None]
  - ADVERSE EVENT [None]
  - APPLICATION SITE RASH [None]
  - PRODUCT QUALITY ISSUE [None]
  - ABNORMAL LOSS OF WEIGHT [None]
